FAERS Safety Report 16153795 (Version 1)
Quarter: 2019Q2

REPORT INFORMATION
  Report Type: Report from Study
  Country: CL (occurrence: CL)
  Receive Date: 20190403
  Receipt Date: 20190403
  Transmission Date: 20190711
  Serious: Yes (Other)
  Sender: FDA-Public Use
  Company Number: PHHY2019CL037762

PATIENT
  Age: 3 Year
  Sex: Male
  Weight: 19 kg

DRUGS (2)
  1. PENTAVALENT VACCINE [Suspect]
     Active Substance: DIPHTHERIA AND TETANUS TOXOIDS AND PERTUSSIS VACCINE AND HAEMOPHILUS B AND HEPATITIS B VIRUS VACCINE
     Indication: PRODUCT USED FOR UNKNOWN INDICATION
     Route: 065
  2. OMNITROPE [Suspect]
     Active Substance: SOMATROPIN
     Indication: GROWTH HORMONE DEFICIENCY
     Dosage: 2 IU, QD
     Route: 058
     Dates: start: 20190118

REACTIONS (10)
  - Screaming [Recovering/Resolving]
  - Nervous system disorder [Unknown]
  - Frustration tolerance decreased [Unknown]
  - Mood altered [Not Recovered/Not Resolved]
  - Irritability [Not Recovered/Not Resolved]
  - Anger [Recovering/Resolving]
  - Intentional self-injury [Unknown]
  - Hypersensitivity [Unknown]
  - Psychomotor hyperactivity [Unknown]
  - Crying [Recovering/Resolving]

NARRATIVE: CASE EVENT DATE: 20190118
